FAERS Safety Report 7813736-7 (Version None)
Quarter: 2011Q4

REPORT INFORMATION
  Report Type: 
  Country: None (occurrence: None)
  Receive Date: 20111014
  Receipt Date: 20110930
  Transmission Date: 20120403
  Serious: Yes (Hospitalization)
  Sender: FDA-Public Use
  Company Number: US-BAYER-2011-081880

PATIENT
  Age: 34 Year
  Sex: Female
  Weight: 68 kg

DRUGS (4)
  1. ZYRTEC [Concomitant]
     Indication: MULTIPLE ALLERGIES
  2. YAZ [Suspect]
     Indication: CONTRACEPTION
     Dosage: UNK
     Dates: start: 20070101, end: 20090101
  3. AVIANE-28 [Concomitant]
     Dosage: UNK UNK, QD
     Dates: start: 20090720, end: 20100701
  4. ANTIBIOTICS [Concomitant]
     Dosage: UNK
     Dates: start: 20100601

REACTIONS (4)
  - MIGRAINE [None]
  - INJURY [None]
  - CEREBROVASCULAR ACCIDENT [None]
  - HYPOAESTHESIA [None]
